FAERS Safety Report 5638169-3 (Version None)
Quarter: 2008Q1

REPORT INFORMATION
  Report Type: 
  Country: None (occurrence: None)
  Receive Date: 20080226
  Receipt Date: 20080214
  Transmission Date: 20080703
  Serious: Yes (Hospitalization, Other)
  Sender: FDA-Public Use
  Company Number: DE-PURDUE-DEU_2008_0004070

PATIENT
  Age: 67 Year
  Sex: Male

DRUGS (16)
  1. OXYGESIC 20 MG [Suspect]
     Indication: PAIN
     Route: 048
     Dates: start: 20040919, end: 20040922
  2. ANTRA [Suspect]
  3. TAVOR [Suspect]
  4. PRAXITEN [Suspect]
  5. ACETYLSALICYLIC ACID [Suspect]
  6. ULTRALAN [Suspect]
  7. DOCITON [Suspect]
  8. METHOTREXAT [Suspect]
  9. AUGMENTIN '125' [Suspect]
  10. C-VITAMIN [Suspect]
  11. MONO-EMBOLEX [Suspect]
  12. BAYOTENSIN [Suspect]
  13. LOPIRIN ^BRISTOL-MYERS SQUIBB^ [Suspect]
  14. IBUPROFEN [Suspect]
  15. NOVALGIN [Suspect]
  16. MIRTAZAPINE [Suspect]

REACTIONS (1)
  - STEVENS-JOHNSON SYNDROME [None]
